FAERS Safety Report 25535702 (Version 1)
Quarter: 2025Q3

REPORT INFORMATION
  Report Type: Report from Study
  Country: GB (occurrence: GB)
  Receive Date: 20250709
  Receipt Date: 20250709
  Transmission Date: 20251020
  Serious: Yes (Death, Other)
  Sender: IPSEN BIOPHARMACEUTICALS, INC.
  Company Number: GB-IPSEN Group, Research and Development-2025-16412

PATIENT
  Sex: Male

DRUGS (2)
  1. LANREOTIDE [Suspect]
     Active Substance: LANREOTIDE
     Indication: Neoplasm malignant
     Dosage: 120 MG, DEEP SUBCUTANEOUS
  2. LANREOTIDE [Suspect]
     Active Substance: LANREOTIDE
     Indication: Product use in unapproved indication

REACTIONS (2)
  - Death [Fatal]
  - Product use in unapproved indication [Unknown]
